FAERS Safety Report 17867284 (Version 5)
Quarter: 2020Q4

REPORT INFORMATION
  Report Type: Report from Study
  Country: CA (occurrence: CA)
  Receive Date: 20200605
  Receipt Date: 20201223
  Transmission Date: 20210113
  Serious: Yes (Hospitalization, Other)
  Sender: FDA-Public Use
  Company Number: PHHY2016CA107024

PATIENT
  Age: 83 Year
  Sex: Male

DRUGS (10)
  1. SANDOSTATIN LAR DEPOT [Suspect]
     Active Substance: OCTREOTIDE ACETATE
  2. TRAVOPROST/TIMOLOL MALEATE A-TTIPQ+EYDR+0.004/0.5 [Suspect]
     Active Substance: TIMOLOL MALEATE\TRAVOPROST
     Indication: PRODUCT USED FOR UNKNOWN INDICATION
     Dosage: 1 DRP
     Route: 065
     Dates: start: 20201210
  3. AMLODIPINE [Concomitant]
     Active Substance: AMLODIPINE BESYLATE
     Indication: PRODUCT USED FOR UNKNOWN INDICATION
     Dosage: UNK, QD
     Route: 065
     Dates: end: 202011
  4. SANDOSTATIN LAR DEPOT [Suspect]
     Active Substance: OCTREOTIDE ACETATE
     Dosage: 20 MG, QMO (EVERY 4 WEEKS)
     Route: 030
     Dates: start: 20200506
  5. TEVETEN [Concomitant]
     Active Substance: EPROSARTAN MESYLATE
     Indication: PRODUCT USED FOR UNKNOWN INDICATION
     Dosage: UNK, QD
     Route: 065
  6. CLOPIDOGREL BISULFATE. [Concomitant]
     Active Substance: CLOPIDOGREL BISULFATE
     Indication: PRODUCT USED FOR UNKNOWN INDICATION
     Dosage: UNK UNK, QD
     Route: 065
  7. SANDOSTATIN [Suspect]
     Active Substance: OCTREOTIDE ACETATE
  8. SANDOSTATIN [Suspect]
     Active Substance: OCTREOTIDE ACETATE
  9. SANDOSTATIN [Suspect]
     Active Substance: OCTREOTIDE ACETATE
     Indication: CARCINOID TUMOUR
     Dosage: ONCE/SINGLE, TEST DOSE
     Route: 058
     Dates: start: 20160725, end: 20160725
  10. SANDOSTATIN LAR DEPOT [Suspect]
     Active Substance: OCTREOTIDE ACETATE
     Indication: CARCINOID TUMOUR
     Dosage: 20 MG, QMO (EVERY 4 WEEKS)
     Route: 030
     Dates: start: 20160802

REACTIONS (23)
  - Dark circles under eyes [Unknown]
  - Malaise [Unknown]
  - Blood pressure systolic increased [Unknown]
  - Pruritus [Unknown]
  - Heart rate irregular [Unknown]
  - Fatigue [Unknown]
  - Injection site discomfort [Recovering/Resolving]
  - Injection site pain [Recovering/Resolving]
  - Ear infection [Unknown]
  - Hypertension [Unknown]
  - Heart rate decreased [Unknown]
  - Cardiac disorder [Unknown]
  - Dyspnoea [Unknown]
  - Hypotension [Unknown]
  - Body temperature decreased [Unknown]
  - Pharyngitis [Unknown]
  - Oedema peripheral [Unknown]
  - Abdominal pain [Unknown]
  - Dizziness [Unknown]
  - Blood pressure fluctuation [Unknown]
  - Tachycardia [Unknown]
  - Arthralgia [Recovering/Resolving]
  - Pericardial effusion [Unknown]

NARRATIVE: CASE EVENT DATE: 2016
